FAERS Safety Report 4894869-4 (Version None)
Quarter: 2006Q1

REPORT INFORMATION
  Report Type: 
  Country: None (occurrence: None)
  Receive Date: 20060130
  Receipt Date: 20050328
  Transmission Date: 20060701
  Serious: Yes (Hospitalization, Other)
  Sender: FDA-Public Use
  Company Number: PHBS2005JP04364

PATIENT
  Age: 9 Year
  Sex: Female
  Weight: 33 kg

DRUGS (3)
  1. TEGRETOL [Suspect]
     Indication: EPILEPSY
     Dosage: 1200 MG/DAY
     Route: 048
     Dates: start: 20050325, end: 20050326
  2. TEGRETOL [Suspect]
     Dosage: 120 MG/DAY
     Route: 048
     Dates: start: 20050401, end: 20050418
  3. TEGRETOL [Suspect]
     Dosage: 160 MG/DAY
     Route: 048
     Dates: start: 20050419

REACTIONS (15)
  - ALANINE AMINOTRANSFERASE INCREASED [None]
  - ASPARTATE AMINOTRANSFERASE INCREASED [None]
  - BLOOD LACTATE DEHYDROGENASE INCREASED [None]
  - BODY TEMPERATURE DECREASED [None]
  - COMA [None]
  - DEPRESSED LEVEL OF CONSCIOUSNESS [None]
  - DIPLOPIA [None]
  - DIZZINESS [None]
  - GASTRIC LAVAGE [None]
  - LIVER DISORDER [None]
  - MALAISE [None]
  - MEDICATION ERROR [None]
  - OVERDOSE [None]
  - PUPILLARY REFLEX IMPAIRED [None]
  - SCHOOL REFUSAL [None]
